FAERS Safety Report 10270886 (Version 4)
Quarter: 2014Q4

REPORT INFORMATION
  Report Type: Spontaneous
  Country: US (occurrence: None)
  Receive Date: 20140627
  Receipt Date: 20141124
  Transmission Date: 20150528
  Serious: Yes (Other)
  Sender: FDA-Public Use
  Company Number: 2014-US-007528

PATIENT
  Age: 24 Year
  Sex: Female

DRUGS (2)
  1. XYREM [Suspect]
     Active Substance: SODIUM OXYBATE
     Indication: CATAPLEXY
     Route: 048
     Dates: start: 20140529, end: 2014
  2. XYREM [Suspect]
     Active Substance: SODIUM OXYBATE
     Indication: NARCOLEPSY
     Route: 048
     Dates: start: 20140529, end: 2014

REACTIONS (17)
  - Depression [None]
  - Agitation [None]
  - Hyperhidrosis [None]
  - Feeling abnormal [None]
  - Hypoaesthesia [None]
  - Decreased appetite [None]
  - Weight decreased [None]
  - Oropharyngeal pain [None]
  - Hypopnoea [None]
  - Tremor [None]
  - Bedridden [None]
  - Narcolepsy [None]
  - Paraesthesia [None]
  - Pituitary tumour [None]
  - Swelling [None]
  - Nasal dryness [None]
  - Confusional state [None]

NARRATIVE: CASE EVENT DATE: 201405
